FAERS Safety Report 7663392-6 (Version None)
Quarter: 2011Q3

REPORT INFORMATION
  Report Type: 
  Country: None (occurrence: None)
  Receive Date: 20110805
  Receipt Date: 20100902
  Transmission Date: 20111222
  Serious: No
  Sender: FDA-Public Use
  Company Number: US-ABBOTT-10P-163-0667935-00

PATIENT
  Sex: Female
  Weight: 64.468 kg

DRUGS (3)
  1. NIASPAN [Suspect]
     Indication: HYPERLIPIDAEMIA
     Dates: start: 20100801
  2. ASPIRIN [Concomitant]
     Indication: PRODUCT USED FOR UNKNOWN INDICATION
  3. VOLTAREN [Concomitant]
     Indication: PRODUCT USED FOR UNKNOWN INDICATION

REACTIONS (4)
  - PRURITUS [None]
  - FEELING HOT [None]
  - HEADACHE [None]
  - TERMINAL INSOMNIA [None]
